FAERS Safety Report 5807818-9 (Version None)
Quarter: 2008Q3

REPORT INFORMATION
  Report Type: 
  Country: None (occurrence: None)
  Receive Date: 20080711
  Receipt Date: 20080312
  Transmission Date: 20090109
  Serious: Yes (Other)
  Sender: FDA-Public Use
  Company Number: JP-PFIZER INC-2008056465

PATIENT
  Age: 59 Year
  Sex: Male

DRUGS (1)
  1. MIGLITOL TABLET [Suspect]
     Dosage: DAILY DOSE:150MG
     Route: 048
     Dates: start: 20080228, end: 20080305

REACTIONS (2)
  - DIARRHOEA [None]
  - HEPATIC FUNCTION ABNORMAL [None]
